FAERS Safety Report 8902992 (Version 2)
Quarter: 2012Q4

REPORT INFORMATION
  Report Type: 
  Country: US (occurrence: US)
  Receive Date: 20121112
  Receipt Date: 20121213
  Transmission Date: 20130627
  Serious: Yes (Hospitalization)
  Sender: FDA-Public Use
  Company Number: US-BIOGENIDEC-2012BI050903

PATIENT
  Age: 59 Year
  Sex: Female

DRUGS (6)
  1. TYSABRI [Suspect]
     Indication: MULTIPLE SCLEROSIS
     Route: 042
     Dates: start: 20080807
  2. WELLBUTRIN XL [Concomitant]
  3. LIPITOR [Concomitant]
  4. LISINOPRIL [Concomitant]
  5. URECHOLINE [Concomitant]
  6. VITAMIN D [Concomitant]

REACTIONS (8)
  - Upper respiratory tract infection [Recovered/Resolved]
  - Gait disturbance [Recovered/Resolved]
  - Nausea [Recovered/Resolved]
  - Heart rate increased [Recovered/Resolved]
  - Pyrexia [Recovered/Resolved]
  - Oropharyngeal pain [Recovered/Resolved]
  - Fatigue [Recovered/Resolved]
  - Dehydration [Recovered/Resolved]
